FAERS Safety Report 11746326 (Version 1)
Quarter: 2015Q4

REPORT INFORMATION
  Report Type: Spontaneous
  Country: US (occurrence: None)
  Receive Date: 20151116
  Receipt Date: 20151116
  Transmission Date: 20160304
  Serious: Yes (Other)
  Sender: FDA-Public Use
  Company Number: None

PATIENT
  Age: 31 Year
  Sex: Female
  Weight: 113.4 kg

DRUGS (1)
  1. LYRICA [Suspect]
     Active Substance: PREGABALIN
     Route: 048

REACTIONS (9)
  - Vomiting [None]
  - Blood potassium abnormal [None]
  - Dizziness [None]
  - Peripheral swelling [None]
  - Asthenia [None]
  - Nausea [None]
  - Shock [None]
  - Disorientation [None]
  - Somnolence [None]

NARRATIVE: CASE EVENT DATE: 20140412
